FAERS Safety Report 7573695-1 (Version None)
Quarter: 2011Q2

REPORT INFORMATION
  Report Type: 
  Country: None (occurrence: None)
  Receive Date: 20110627
  Receipt Date: 20110617
  Transmission Date: 20111010
  Serious: Yes (Other)
  Sender: FDA-Public Use
  Company Number: PL-ROCHE-778652

PATIENT
  Sex: Female
  Weight: 45 kg

DRUGS (6)
  1. ACTEMRA [Suspect]
     Dosage: DOSE: 8 MG/KG
     Route: 042
     Dates: end: 20110210
  2. METHYLPREDNISOLONE [Concomitant]
     Indication: RHEUMATOID ARTHRITIS
     Dosage: FREQUENCY: 1 X DAY
     Route: 048
  3. POLPRAZOL [Concomitant]
     Indication: RHEUMATOID ARTHRITIS
     Dosage: FREQUENCY: 1 X DAY
     Route: 048
  4. METHOTREXATE [Concomitant]
     Indication: RHEUMATOID ARTHRITIS
     Dosage: FREQUENCY: 1 X WEEK
     Route: 048
  5. MAJAMIL [Concomitant]
     Indication: RHEUMATOID ARTHRITIS
     Dosage: FREQUENCY: EMERGENCY
     Route: 048
  6. ACTEMRA [Suspect]
     Dosage: DOSE: 8 MG/KG FREQUENCY: 1 X MONTH
     Route: 042
     Dates: start: 20100304, end: 20101201

REACTIONS (1)
  - BLOOD FIBRINOGEN DECREASED [None]
